FAERS Safety Report 17272297 (Version 2)
Quarter: 2020Q1

REPORT INFORMATION
  Report Type: Report from Study
  Country: None (occurrence: US)
  Receive Date: 20200115
  Receipt Date: 20200227
  Transmission Date: 20200409
  Serious: Yes (Hospitalization)
  Sender: FDA-Public Use
  Company Number: US-ABBVIE-20K-163-3229925-00

PATIENT
  Age: 76 Year
  Sex: Male

DRUGS (1)
  1. CREON [Suspect]
     Active Substance: PANCRELIPASE AMYLASE\PANCRELIPASE LIPASE\PANCRELIPASE PROTEASE
     Indication: PRODUCT USED FOR UNKNOWN INDICATION
     Dosage: 3 CAPS 36,000 UNITS LIPASE WITH EVERY MEAL AND 2 CAPS WITH EVERY SNACK
     Route: 048
     Dates: start: 201712

REACTIONS (8)
  - Oedema peripheral [Unknown]
  - Diarrhoea [Unknown]
  - Fatigue [Unknown]
  - Atrial fibrillation [Unknown]
  - Weight increased [Unknown]
  - Abdominal distension [Unknown]
  - Cardiac pacemaker insertion [Unknown]
  - Flatulence [Unknown]

NARRATIVE: CASE EVENT DATE: 20200103
